FAERS Safety Report 9384539 (Version 1)
Quarter: 2013Q3

REPORT INFORMATION
  Report Type: Spontaneous
  Country: US (occurrence: US)
  Receive Date: 20130705
  Receipt Date: 20130705
  Transmission Date: 20140515
  Serious: No
  Sender: FDA-Public Use
  Company Number: US-ASTRAZENECA-2013SE48675

PATIENT
  Age: 46 Year
  Sex: Male
  Weight: 122.5 kg

DRUGS (3)
  1. CRESTOR [Suspect]
     Indication: BLOOD CHOLESTEROL ABNORMAL
     Dosage: DAILY
     Route: 048
  2. CRESTOR [Suspect]
     Indication: BLOOD CHOLESTEROL ABNORMAL
     Route: 048
     Dates: start: 20130610
  3. ENBREL [Concomitant]
     Indication: PSORIATIC ARTHROPATHY
     Route: 050

REACTIONS (3)
  - Pain [Unknown]
  - Myalgia [Unknown]
  - Drug dose omission [Unknown]
